FAERS Safety Report 22175848 (Version 1)
Quarter: 2023Q2

REPORT INFORMATION
  Report Type: Spontaneous
  Country: US (occurrence: US)
  Receive Date: 20230405
  Receipt Date: 20230405
  Transmission Date: 20230721
  Serious: No
  Sender: FDA-Public Use
  Company Number: US-PADAGIS-2023PAD00435

PATIENT

DRUGS (3)
  1. BETAMETHASONE DIPROPIONATE USP, 0.05% [Suspect]
     Active Substance: BETAMETHASONE DIPROPIONATE
     Indication: Symptomatic treatment
     Dosage: UNK
     Route: 061
  2. BRENTUXIMAB VEDOTIN;CYCLOPHOSPHAMIDE;DOXORUBICIN;PREDNISONE [Concomitant]
     Indication: Angioimmunoblastic T-cell lymphoma
     Dosage: UNK, (6 CYCLES OF THE ??A1CHP?? REGIMEN (BRENTUXIMAB VEDOTIN, CYCLOPHOSPHAMIDE, DOXORUBICIN, AND PRE
     Route: 065
  3. CARBOPLATIN\ETOPOSIDE\IFOSFAMIDE [Concomitant]
     Active Substance: CARBOPLATIN\ETOPOSIDE\IFOSFAMIDE
     Indication: Angioimmunoblastic T-cell lymphoma
     Dosage: UNK, (2 CYCLES OF ICE (IFOSFAMIDE, CARBOPLATIN, AND ETOPOSIDE) THERAPY)
     Route: 065

REACTIONS (1)
  - Therapy partial responder [Unknown]
